FAERS Safety Report 10224117 (Version 1)
Quarter: 2014Q2

REPORT INFORMATION
  Report Type: Report from Study
  Country: US (occurrence: US)
  Receive Date: 20140609
  Receipt Date: 20140609
  Transmission Date: 20141212
  Serious: Yes (Hospitalization)
  Sender: FDA-Public Use
  Company Number: PHEH2014US011367

PATIENT
  Sex: Female

DRUGS (5)
  1. EXJADE [Suspect]
     Indication: SICKLE CELL ANAEMIA
     Dosage: 3 DF, TID
     Route: 048
  2. EXJADE [Suspect]
     Indication: IRON METABOLISM DISORDER
  3. FOLIC ACID [Concomitant]
     Dosage: 1 MG, QD
     Route: 048
  4. ACETAMINOPHEN [Concomitant]
     Dosage: 650 MG, UNK
     Route: 048
  5. BENADRYL                           /00647601/ [Concomitant]
     Dosage: 25 MG, UNK
     Route: 048

REACTIONS (5)
  - Syncope [Unknown]
  - Dizziness [Unknown]
  - Hypertension [Unknown]
  - Renal disorder [Unknown]
  - Anaemia [Unknown]
